FAERS Safety Report 5712939-5 (Version None)
Quarter: 2008Q2

REPORT INFORMATION
  Report Type: 
  Country: None (occurrence: None)
  Receive Date: 20080421
  Receipt Date: 20080421
  Transmission Date: 20081010
  Serious: Yes (Hospitalization)
  Sender: FDA-Public Use
  Company Number: None

PATIENT
  Age: 28 Year
  Sex: Male
  Weight: 100.7 kg

DRUGS (1)
  1. CARBAMAZEPINE [Suspect]
     Indication: MOOD ALTERED
     Dosage: 100 MG BID PO
     Route: 048
     Dates: start: 20071116, end: 20071123

REACTIONS (3)
  - DRUG ERUPTION [None]
  - INFLUENZA LIKE ILLNESS [None]
  - RASH MORBILLIFORM [None]
